FAERS Safety Report 7889561-8 (Version None)
Quarter: 2011Q4

REPORT INFORMATION
  Report Type: 
  Country: None (occurrence: None)
  Receive Date: 20111103
  Receipt Date: 20110307
  Transmission Date: 20120403
  Serious: No
  Sender: FDA-Public Use
  Company Number: US-BRISTOL-MYERS SQUIBB COMPANY-15591464

PATIENT

DRUGS (1)
  1. KENALOG-40 [Suspect]
     Dosage: 1DF:5MG AND 1MG VIAL LOT#: 0H49953 EX 07/2012 LOT#: 0K64514 EX. 09/2012

REACTIONS (1)
  - DRUG INEFFECTIVE [None]
